FAERS Safety Report 5660181-9 (Version None)
Quarter: 2008Q1

REPORT INFORMATION
  Report Type: 
  Country: None (occurrence: None)
  Receive Date: 20080212
  Receipt Date: 20070313
  Transmission Date: 20080703
  Serious: Yes (Other)
  Sender: FDA-Public Use
  Company Number: MC200700191

PATIENT

DRUGS (2)
  1. ANGIOMAX [Suspect]
  2. PLAVIX [Concomitant]

REACTIONS (1)
  - CORONARY ARTERY THROMBOSIS [None]
